FAERS Safety Report 15838617 (Version 1)
Quarter: 2019Q1

REPORT INFORMATION
  Report Type: Spontaneous
  Country: US (occurrence: US)
  Receive Date: 20190117
  Receipt Date: 20190117
  Transmission Date: 20190417
  Serious: No
  Sender: FDA-Public Use
  Company Number: US-ASTRAZENECA-2018SF68432

PATIENT
  Sex: Female
  Weight: 83.9 kg

DRUGS (1)
  1. FARXIGA [Suspect]
     Active Substance: DAPAGLIFLOZIN PROPANEDIOL
     Indication: DIABETES MELLITUS
     Route: 048
     Dates: start: 201809, end: 20181214

REACTIONS (4)
  - Product dose omission [Unknown]
  - Fungal infection [Not Recovered/Not Resolved]
  - Diabetes mellitus inadequate control [Unknown]
  - Intentional product misuse [Unknown]
